FAERS Safety Report 25067992 (Version 2)
Quarter: 2025Q2

REPORT INFORMATION
  Report Type: Spontaneous
  Country: US (occurrence: US)
  Receive Date: 20250312
  Receipt Date: 20250402
  Transmission Date: 20250716
  Serious: No
  Sender: MYLAN
  Company Number: US-MYLANLABS-2025M1020284

PATIENT
  Sex: Female
  Weight: 51.26 kg

DRUGS (1)
  1. LIPITOR [Suspect]
     Active Substance: ATORVASTATIN CALCIUM
     Indication: Blood cholesterol increased
     Dosage: UNK, QD (ONCE A DAY)

REACTIONS (1)
  - Gastrointestinal disorder [Unknown]
